FAERS Safety Report 21303329 (Version 1)
Quarter: 2022Q3

REPORT INFORMATION
  Report Type: Spontaneous
  Country: US (occurrence: None)
  Receive Date: 20220907
  Receipt Date: 20220907
  Transmission Date: 20221026
  Serious: Yes (Hospitalization, Disabling, Other)
  Sender: FDA-Public Use
  Company Number: None

PATIENT
  Age: 51 Year
  Sex: Female
  Weight: 47.25 kg

DRUGS (1)
  1. EMGALITY [Suspect]
     Active Substance: GALCANEZUMAB-GNLM
     Indication: Migraine
     Dosage: OTHER FREQUENCY : ONCE A MONTH;?
     Route: 030

REACTIONS (12)
  - Product formulation issue [None]
  - Drug hypersensitivity [None]
  - Tongue ulceration [None]
  - Lip ulceration [None]
  - Mouth ulceration [None]
  - Tongue haemorrhage [None]
  - Pain [None]
  - Weight decreased [None]
  - Stress [None]
  - Hypophagia [None]
  - Lymphadenopathy [None]
  - Ear pain [None]

NARRATIVE: CASE EVENT DATE: 20200327
